FAERS Safety Report 6540057-5 (Version None)
Quarter: 2010Q1

REPORT INFORMATION
  Report Type: 
  Country: None (occurrence: None)
  Receive Date: 20100115
  Receipt Date: 20100105
  Transmission Date: 20100710
  Serious: Yes (Life-Threatening)
  Sender: FDA-Public Use
  Company Number: FR-ABBOTT-10P-056-0617848-00

PATIENT
  Sex: Male

DRUGS (11)
  1. LIPANTHYL TABLETS [Suspect]
     Indication: DYSLIPIDAEMIA
     Dosage: DAILY
     Route: 048
     Dates: start: 20091101, end: 20091102
  2. TENORMIN [Suspect]
     Indication: HYPERTENSION
     Route: 048
     Dates: start: 20091102, end: 20091102
  3. COVERSYL [Suspect]
     Indication: HYPERTENSION
     Dates: start: 20091101, end: 20091101
  4. LOXEN [Suspect]
     Indication: HYPERTENSION
     Dates: start: 20091103, end: 20091103
  5. GLUCOPHAGE [Concomitant]
     Indication: TYPE 2 DIABETES MELLITUS
     Route: 048
  6. DIAMICRON [Concomitant]
     Indication: TYPE 2 DIABETES MELLITUS
     Route: 048
  7. VASTAREL [Concomitant]
     Indication: DRUG USE FOR UNKNOWN INDICATION
     Route: 048
  8. PLAVIX [Concomitant]
     Indication: DRUG USE FOR UNKNOWN INDICATION
     Route: 048
  9. ASPEGIC 1000 [Concomitant]
     Indication: DRUG USE FOR UNKNOWN INDICATION
     Route: 048
  10. LEXOMIL [Concomitant]
     Indication: DRUG USE FOR UNKNOWN INDICATION
     Route: 048
  11. LIPANOR [Concomitant]
     Indication: DYSLIPIDAEMIA
     Dosage: DAILY
     Route: 048

REACTIONS (5)
  - ANURIA [None]
  - BRADYCARDIA [None]
  - HEPATIC ENZYME INCREASED [None]
  - RENAL FAILURE ACUTE [None]
  - THROMBOCYTOPENIA [None]
